FAERS Safety Report 4587317-5 (Version None)
Quarter: 2005Q1

REPORT INFORMATION
  Report Type: 
  Country: None (occurrence: None)
  Receive Date: 20050215
  Receipt Date: 20050202
  Transmission Date: 20050727
  Serious: No
  Sender: FDA-Public Use
  Company Number: 2005CG00261

PATIENT
  Sex: Female

DRUGS (1)
  1. EMLA [Suspect]
     Indication: LOCAL ANAESTHESIA
     Dates: start: 20040428, end: 20040428

REACTIONS (4)
  - ACCIDENTAL EXPOSURE [None]
  - CORNEAL ULCER [None]
  - EYE INJURY [None]
  - EYE IRRITATION [None]
